FAERS Safety Report 8154017-4 (Version None)
Quarter: 2012Q1

REPORT INFORMATION
  Report Type: 
  Country: None (occurrence: None)
  Receive Date: 20120221
  Receipt Date: 20120221
  Transmission Date: 20120608
  Serious: No
  Sender: FDA-Public Use
  Company Number: None

PATIENT
  Age: 16 Year
  Sex: Female
  Weight: 56.699 kg

DRUGS (1)
  1. ISUPREL [Suspect]
     Indication: SUPRAVENTRICULAR TACHYCARDIA
     Dosage: 4-6 MCG
     Route: 042
     Dates: start: 20120210, end: 20120210

REACTIONS (1)
  - DRUG INEFFECTIVE [None]
